FAERS Safety Report 5915222-8 (Version None)
Quarter: 2008Q4

REPORT INFORMATION
  Report Type: 
  Country: None (occurrence: None)
  Receive Date: 20081010
  Receipt Date: 20081001
  Transmission Date: 20090506
  Serious: Yes (Hospitalization)
  Sender: FDA-Public Use
  Company Number: US-MERCK-0810USA00245

PATIENT
  Age: 41 Year
  Sex: Female

DRUGS (4)
  1. SINGULAIR [Suspect]
     Indication: HYPERSENSITIVITY
     Route: 048
     Dates: start: 20070110, end: 20080429
  2. SINGULAIR [Suspect]
     Route: 048
     Dates: start: 20080430, end: 20080910
  3. ADVAIR DISKUS 100/50 [Concomitant]
     Route: 065
  4. XYZAL [Concomitant]
     Route: 065

REACTIONS (7)
  - ASTHMA [None]
  - CHEST PAIN [None]
  - DRUG HYPERSENSITIVITY [None]
  - DYSPNOEA [None]
  - NASOPHARYNGITIS [None]
  - OVERDOSE [None]
  - PNEUMONIA [None]
